FAERS Safety Report 5593611-1 (Version None)
Quarter: 2008Q1

REPORT INFORMATION
  Report Type: 
  Country: None (occurrence: None)
  Receive Date: 20080116
  Receipt Date: 20080109
  Transmission Date: 20080703
  Serious: Yes (Other)
  Sender: FDA-Public Use
  Company Number: GB-RANBAXY-2008RR-12484

PATIENT

DRUGS (8)
  1. SIMVASTATIN [Suspect]
     Dosage: 40 MG, UNK
     Route: 048
     Dates: start: 20070927, end: 20071223
  2. ADALAT [Concomitant]
     Dosage: 60 MG, UNK
     Route: 048
     Dates: start: 20001201
  3. ATENOLOL TABLETS BP 50MG [Concomitant]
     Dosage: 50 MG, UNK
     Route: 048
     Dates: start: 20000131
  4. BENDROFLUMETHIAZIDE [Concomitant]
     Dosage: 2.5 MG, UNK
     Route: 048
     Dates: start: 20030303
  5. GLICLAZIDE [Concomitant]
     Dosage: 80 MG, UNK
     Route: 048
  6. LIPITOR [Concomitant]
     Dosage: 10 MG, UNK
     Route: 048
     Dates: start: 20071227
  7. METFORMIN 500MG TABLETS [Concomitant]
     Dosage: 500 MG, UNK
     Route: 048
     Dates: start: 20040607
  8. RAMIPRIL 10 MG CAPSULES [Concomitant]
     Dosage: 10 MG, UNK
     Route: 048
     Dates: start: 20021004

REACTIONS (5)
  - ABDOMINAL PAIN UPPER [None]
  - FLATULENCE [None]
  - MIGRAINE WITH AURA [None]
  - PAIN [None]
  - SWELLING FACE [None]
